FAERS Safety Report 6555177-9 (Version None)
Quarter: 2010Q1

REPORT INFORMATION
  Report Type: 
  Country: None (occurrence: None)
  Receive Date: 20100128
  Receipt Date: 20100114
  Transmission Date: 20100710
  Serious: No
  Sender: FDA-Public Use
  Company Number: US-B.I. PHARMACEUTICALS,INC./RIDGEFIELD-2010-BP-00529BP

PATIENT
  Sex: Female

DRUGS (7)
  1. SPIRIVA [Suspect]
     Indication: BRONCHITIS CHRONIC
     Dosage: 18 MCG
     Route: 055
     Dates: start: 20080101
  2. ALPRAZOLAM [Concomitant]
     Indication: ANXIETY
  3. TRAZODONE [Concomitant]
     Indication: ANXIETY
  4. LEVOTHROID [Concomitant]
     Indication: HYPOTHYROIDISM
  5. FLORINES [Concomitant]
     Indication: HYPOTENSION
  6. VITAMINS [Concomitant]
     Indication: PROPHYLAXIS
  7. OMEPRAZOLE [Concomitant]
     Indication: GASTROOESOPHAGEAL REFLUX DISEASE

REACTIONS (2)
  - ARTHRITIS [None]
  - NASOPHARYNGITIS [None]
